FAERS Safety Report 21044088 (Version 1)
Quarter: 2022Q3

REPORT INFORMATION
  Report Type: Spontaneous
  Country: US (occurrence: None)
  Receive Date: 20220702
  Receipt Date: 20220702
  Transmission Date: 20221027
  Serious: Yes (Other)
  Sender: FDA-Public Use
  Company Number: None

PATIENT
  Age: 18 Year
  Sex: Female
  Weight: 52.16 kg

DRUGS (6)
  1. MIRENA [Suspect]
     Active Substance: LEVONORGESTREL
  2. Testosterone cypionate 50mg [Concomitant]
  3. LAMICTAL [Concomitant]
     Active Substance: LAMOTRIGINE
  4. LITHIUM [Concomitant]
     Active Substance: LITHIUM
  5. REXULTI [Concomitant]
     Active Substance: BREXPIPRAZOLE
  6. ADDERALL XR [Concomitant]
     Active Substance: AMPHETAMINE ASPARTATE\AMPHETAMINE SULFATE\DEXTROAMPHETAMINE SACCHARATE\DEXTROAMPHETAMINE SULFATE

REACTIONS (7)
  - Anxiety [None]
  - Disturbance in attention [None]
  - Agitation [None]
  - Impaired quality of life [None]
  - Crying [None]
  - Suicidal ideation [None]
  - Emotional disorder [None]

NARRATIVE: CASE EVENT DATE: 20220101
